FAERS Safety Report 9459438 (Version 1)
Quarter: 2013Q3

REPORT INFORMATION
  Report Type: Report from Study
  Country: US (occurrence: US)
  Receive Date: 20130815
  Receipt Date: 20130815
  Transmission Date: 20140515
  Serious: Yes (Other)
  Sender: FDA-Public Use
  Company Number: US-ROCHE-1261054

PATIENT
  Age: 64 Year
  Sex: Male

DRUGS (6)
  1. AVASTIN [Suspect]
     Indication: DIABETIC RETINAL OEDEMA
     Dosage: OS
     Route: 065
     Dates: start: 20100811
  2. AVASTIN [Suspect]
     Dosage: OD
     Route: 065
     Dates: start: 20101117
  3. DIOVAN [Concomitant]
     Route: 065
     Dates: start: 20130413
  4. GLIMEPIRIDE [Concomitant]
     Route: 065
     Dates: start: 20130413
  5. METFORMIN [Concomitant]
     Route: 065
     Dates: start: 20130413
  6. TRICOR (UNITED STATES) [Concomitant]
     Route: 065
     Dates: start: 20130413

REACTIONS (5)
  - Macular oedema [Unknown]
  - Vitreous floaters [Unknown]
  - Retinal haemorrhage [Unknown]
  - Scar [Unknown]
  - Aneurysm [Unknown]
